FAERS Safety Report 5209085-6 (Version None)
Quarter: 2007Q1

REPORT INFORMATION
  Report Type: 
  Country: None (occurrence: None)
  Receive Date: 20070116
  Receipt Date: 20070111
  Transmission Date: 20070707
  Serious: Yes (Other)
  Sender: FDA-Public Use
  Company Number: CA-JNJFOC-20060105686

PATIENT
  Sex: Male
  Weight: 81 kg

DRUGS (10)
  1. REMICADE [Suspect]
     Route: 042
     Dates: start: 20050623, end: 20051206
  2. REMICADE [Suspect]
     Route: 042
     Dates: start: 20050623, end: 20051206
  3. REMICADE [Suspect]
     Route: 042
     Dates: start: 20050623, end: 20051206
  4. REMICADE [Suspect]
     Route: 042
     Dates: start: 20050623, end: 20051206
  5. REMICADE [Suspect]
     Indication: CROHN'S DISEASE
     Route: 042
     Dates: start: 20050623, end: 20051206
  6. PURINETHOL [Concomitant]
     Route: 048
  7. PLAVIX [Concomitant]
     Route: 048
  8. LIPITOR [Concomitant]
     Route: 048
  9. GLUCOPHAGE [Concomitant]
     Route: 048
  10. DIABETA [Concomitant]
     Route: 048

REACTIONS (1)
  - LUNG NEOPLASM [None]
